FAERS Safety Report 6418080-0 (Version None)
Quarter: 2009Q4

REPORT INFORMATION
  Report Type: 
  Country: None (occurrence: None)
  Receive Date: 20091028
  Receipt Date: 20091016
  Transmission Date: 20100525
  Serious: Yes (Hospitalization)
  Sender: FDA-Public Use
  Company Number: FR-PFIZER INC-2009287881

PATIENT
  Age: 49 Year

DRUGS (10)
  1. HYDROXYZINE HCL [Suspect]
     Indication: ANXIETY
     Dosage: UNK
     Route: 048
     Dates: start: 20090901, end: 20090901
  2. ORBENIN CAP [Suspect]
     Dosage: UNK
     Route: 048
     Dates: start: 20090904, end: 20090922
  3. CORTANCYL [Concomitant]
     Indication: SYSTEMIC LUPUS ERYTHEMATOSUS
     Dosage: UNK
  4. COLECALCIFEROL [Concomitant]
     Dosage: UNK
     Dates: start: 20090901, end: 20090901
  5. ZOLEDRONATE [Concomitant]
     Dosage: 5 MG, SINGLE
     Route: 042
     Dates: start: 20090901, end: 20090901
  6. FLECAINIDE ACETATE [Concomitant]
     Dosage: UNK
  7. LOVENOX [Concomitant]
     Dosage: UNK
  8. SKENAN [Concomitant]
     Dosage: UNK
  9. KARDEGIC [Concomitant]
     Dosage: UNK
  10. NEXIUM [Concomitant]
     Dosage: UNK

REACTIONS (2)
  - ACUTE GENERALISED EXANTHEMATOUS PUSTULOSIS [None]
  - PSORIASIS [None]
